FAERS Safety Report 25705058 (Version 2)
Quarter: 2025Q3

REPORT INFORMATION
  Report Type: Spontaneous
  Country: JP (occurrence: JP)
  Receive Date: 20250820
  Receipt Date: 20250916
  Transmission Date: 20251021
  Serious: Yes (Death, Life-Threatening, Other)
  Sender: RECORDATI
  Company Number: JP-ORPHANEU-2025005873

PATIENT
  Age: 68 Year
  Sex: Male
  Weight: 58.9 kg

DRUGS (9)
  1. ENJAYMO [Suspect]
     Active Substance: SUTIMLIMAB-JOME
     Indication: Cold type haemolytic anaemia
     Route: 041
     Dates: start: 20230124, end: 20230124
  2. ENJAYMO [Suspect]
     Active Substance: SUTIMLIMAB-JOME
     Route: 041
     Dates: start: 20230131, end: 20230131
  3. ENJAYMO [Suspect]
     Active Substance: SUTIMLIMAB-JOME
     Route: 041
     Dates: start: 20230214, end: 20230214
  4. ENJAYMO [Suspect]
     Active Substance: SUTIMLIMAB-JOME
     Route: 041
     Dates: start: 20230303, end: 20230303
  5. ENJAYMO [Suspect]
     Active Substance: SUTIMLIMAB-JOME
     Route: 041
     Dates: start: 20230317, end: 20230317
  6. URSODIOL [Concomitant]
     Active Substance: URSODIOL
     Indication: Product used for unknown indication
     Dates: end: 20230401
  7. PANCRELIPASE [Concomitant]
     Active Substance: PANCRELIPASE
     Indication: Product used for unknown indication
     Dates: end: 20230401
  8. VILDAGLIPTIN [Concomitant]
     Active Substance: VILDAGLIPTIN
     Indication: Product used for unknown indication
     Dates: end: 20230401
  9. REPAGLINIDE [Concomitant]
     Active Substance: REPAGLINIDE
     Indication: Product used for unknown indication
     Dates: end: 20230401

REACTIONS (2)
  - Bile duct cancer [Fatal]
  - Condition aggravated [Fatal]

NARRATIVE: CASE EVENT DATE: 20230317
